FAERS Safety Report 9421132 (Version 1)
Quarter: 2013Q3

REPORT INFORMATION
  Report Type: Spontaneous
  Country: IT (occurrence: IT)
  Receive Date: 20130725
  Receipt Date: 20130725
  Transmission Date: 20140515
  Serious: Yes (Hospitalization)
  Sender: FDA-Public Use
  Company Number: PHHY2013IT077596

PATIENT
  Age: 45 Year
  Sex: Female
  Weight: 63 kg

DRUGS (9)
  1. LORAZEPAM [Suspect]
     Dosage: 5 MG, QD
     Route: 048
     Dates: start: 20130101, end: 20130418
  2. TALOFEN [Suspect]
     Dosage: 15 DRP, QD
     Dates: start: 20130101, end: 20130418
  3. CARDIOASPIRIN [Concomitant]
     Dates: start: 20130101
  4. SEROQUEL [Concomitant]
     Dates: start: 20130101
  5. TRIATEC [Concomitant]
     Dates: start: 20130101
  6. ONCO CARBIDE [Concomitant]
     Dates: start: 20110701
  7. GEMFIBROZIL [Concomitant]
     Dates: start: 20130101
  8. BACLOFEN [Concomitant]
     Dates: start: 20130101
  9. OMEPRAZOLE [Concomitant]

REACTIONS (3)
  - Bradykinesia [Recovered/Resolved]
  - Dysphagia [Recovered/Resolved]
  - Bradyphrenia [Recovered/Resolved]
